FAERS Safety Report 25481406 (Version 1)
Quarter: 2025Q2

REPORT INFORMATION
  Report Type: Report from Study
  Country: RS (occurrence: RS)
  Receive Date: 20250626
  Receipt Date: 20250626
  Transmission Date: 20250716
  Serious: Yes (Other)
  Sender: ABBVIE
  Company Number: RS-ABBVIE-6343319

PATIENT
  Age: 33 Year
  Sex: Female

DRUGS (1)
  1. LEVONORGESTREL [Suspect]
     Active Substance: LEVONORGESTREL
     Indication: Endometrial hyperplasia
     Route: 015

REACTIONS (3)
  - Endometrial cancer [Unknown]
  - Off label use [Unknown]
  - Neoplasm progression [Unknown]
